FAERS Safety Report 10653865 (Version 5)
Quarter: 2016Q1

REPORT INFORMATION
  Report Type: Report from Study
  Country: JP (occurrence: JP)
  Receive Date: 20141216
  Receipt Date: 20160126
  Transmission Date: 20160525
  Serious: Yes (Hospitalization)
  Sender: FDA-Public Use
  Company Number: JP-ROCHE-1473529

PATIENT
  Age: 48 Year
  Sex: Female
  Weight: 61.1 kg

DRUGS (49)
  1. PERTUZUMAB [Suspect]
     Active Substance: PERTUZUMAB
     Dosage: MAINTENANCE DOSE?MOST RECENT DOSE: 26/SEP/2014, CYCLE 2DAY1
     Route: 042
     Dates: start: 20140815
  2. DOCETAXEL. [Suspect]
     Active Substance: DOCETAXEL
     Dosage: MOST RECENT DOSE: 26/SEP/2014, CYCLE 2DAY1
     Route: 042
     Dates: start: 20140815
  3. CYCLOPHOSPHAMIDE. [Suspect]
     Active Substance: CYCLOPHOSPHAMIDE
     Dosage: CYCLE 2DAY1
     Route: 065
     Dates: start: 20140430
  4. CYCLOPHOSPHAMIDE. [Suspect]
     Active Substance: CYCLOPHOSPHAMIDE
     Dosage: CYCLE 3DAY1
     Route: 065
     Dates: start: 20140611
  5. GLIMEPIRIDE. [Concomitant]
     Active Substance: GLIMEPIRIDE
     Dosage: SELECT IF ONGOING=YES
     Route: 065
  6. NEO MEDROL EE [Concomitant]
     Route: 065
     Dates: start: 20140822, end: 20150204
  7. VOALLA [Concomitant]
     Route: 065
     Dates: start: 20140912, end: 20141030
  8. ALLELOCK [Concomitant]
     Active Substance: OLOPATADINE HYDROCHLORIDE
     Route: 065
     Dates: start: 20140926, end: 20141107
  9. TRASTUZUMAB [Suspect]
     Active Substance: TRASTUZUMAB
     Indication: HER-2 POSITIVE BREAST CANCER
     Dosage: LOADING DOSE, CYCLE 1DAY1
     Route: 042
     Dates: start: 20140723
  10. TRASTUZUMAB [Suspect]
     Active Substance: TRASTUZUMAB
     Dosage: MAINTENANCE DOSE?MOST RECENT DOSE:26/SEP/2014, CYCLE 4DAY1
     Route: 042
     Dates: start: 20140926
  11. DOCETAXEL. [Suspect]
     Active Substance: DOCETAXEL
     Indication: HER-2 POSITIVE BREAST CANCER
     Dosage: MOST RECENT DOSE: 26/SEP/2014, CYCLE 1DAY1
     Route: 042
     Dates: start: 20140723, end: 20140926
  12. CYCLOPHOSPHAMIDE. [Suspect]
     Active Substance: CYCLOPHOSPHAMIDE
     Indication: HER-2 POSITIVE BREAST CANCER
     Dosage: CYCLE 1 DAY1
     Route: 065
     Dates: start: 20140408
  13. CYCLOPHOSPHAMIDE. [Suspect]
     Active Substance: CYCLOPHOSPHAMIDE
     Dosage: CYCLE 4DAY1
     Route: 065
     Dates: start: 20140702
  14. FAMOTIDINE. [Concomitant]
     Active Substance: FAMOTIDINE
  15. CRAVIT [Concomitant]
     Active Substance: LEVOFLOXACIN
     Route: 047
     Dates: start: 20140822
  16. SYMBICORT [Concomitant]
     Active Substance: BUDESONIDE\FORMOTEROL FUMARATE DIHYDRATE
     Route: 065
     Dates: start: 20141212, end: 20150114
  17. UNIPHYL LA [Concomitant]
     Active Substance: THEOPHYLLINE ANHYDROUS
     Route: 065
     Dates: start: 20141212, end: 20150114
  18. DOCETAXEL. [Suspect]
     Active Substance: DOCETAXEL
     Dosage: MOST RECENT DOSE: 26/SEP/2014, CYCLE 3DAY1
     Route: 042
     Dates: start: 20140905
  19. 5-FLUOROURACIL [Suspect]
     Active Substance: FLUOROURACIL
     Indication: HER-2 POSITIVE BREAST CANCER
     Dosage: CYCLE 1DAY1
     Route: 065
     Dates: start: 20140408
  20. HIRUDOID OINTMENT [Concomitant]
     Route: 065
     Dates: start: 20140902, end: 20150131
  21. PERTUZUMAB [Suspect]
     Active Substance: PERTUZUMAB
     Indication: HER-2 POSITIVE BREAST CANCER
     Dosage: LOADING DOSE, CYCLE 1DAY1
     Route: 042
     Dates: start: 20140723
  22. PERTUZUMAB [Suspect]
     Active Substance: PERTUZUMAB
     Dosage: MAINTENANCE DOSE?MOST RECENT DOSE: 26/SEP/2014, CYCLE 3DAY1
     Route: 042
     Dates: start: 20140905
  23. 5-FLUOROURACIL [Suspect]
     Active Substance: FLUOROURACIL
     Dosage: CYCLE 2DAY1
     Route: 065
     Dates: start: 20140430
  24. DECADRON [Concomitant]
     Active Substance: DEXAMETHASONE
     Indication: VOMITING
     Route: 065
     Dates: start: 20140906, end: 20140907
  25. FLOMOX (JAPAN) [Concomitant]
     Active Substance: CEFCAPENE PIVOXIL HYDROCHLORIDE HYDRATE
     Route: 065
     Dates: start: 20141029, end: 20141101
  26. FLOMOX (JAPAN) [Concomitant]
     Active Substance: CEFCAPENE PIVOXIL HYDROCHLORIDE HYDRATE
     Route: 065
     Dates: start: 20141110, end: 20141114
  27. ALDACTONE-A [Concomitant]
     Active Substance: SPIRONOLACTONE
     Route: 065
     Dates: start: 20140926, end: 20141126
  28. PERTUZUMAB [Suspect]
     Active Substance: PERTUZUMAB
     Dosage: MAINTENANCE DOSE?MOST RECENT DOSE: 26/SEP/2014, CYCLE 4 DAY 1
     Route: 042
     Dates: start: 20140926
  29. DOCETAXEL. [Suspect]
     Active Substance: DOCETAXEL
     Dosage: MOST RECENT DOSE: 26/SEP/2014, CYCLE 4DAY1
     Route: 042
     Dates: start: 20140926, end: 20140926
  30. 5-FLUOROURACIL [Suspect]
     Active Substance: FLUOROURACIL
     Dosage: CYCLE 4DAY1
     Route: 065
     Dates: start: 20140702
  31. EPIRUBICIN [Suspect]
     Active Substance: EPIRUBICIN
     Indication: HER-2 POSITIVE BREAST CANCER
     Dosage: CYCLE 1DAY1
     Route: 065
     Dates: start: 20140408
  32. EPIRUBICIN [Suspect]
     Active Substance: EPIRUBICIN
     Dosage: CYCLE 2DAY1
     Route: 065
     Dates: start: 20140430
  33. EPIRUBICIN [Suspect]
     Active Substance: EPIRUBICIN
     Dosage: CYCLE 3DAY1
     Route: 065
     Dates: start: 20140611
  34. INSULIN HUMAN LISPRO [Concomitant]
     Route: 065
     Dates: start: 20140527
  35. ANTEBATE [Concomitant]
     Active Substance: BETAMETHASONE DIPROPIONATE
     Route: 065
     Dates: start: 20140902, end: 20141130
  36. LASIX [Concomitant]
     Active Substance: FUROSEMIDE
     Route: 065
     Dates: start: 20140906
  37. XYZAL [Concomitant]
     Active Substance: LEVOCETIRIZINE DIHYDROCHLORIDE
     Route: 065
     Dates: start: 20140926, end: 20141107
  38. NEOSTELIN GREEN [Concomitant]
     Route: 065
     Dates: start: 20141031, end: 20141109
  39. LOXONIN [Concomitant]
     Active Substance: LOXOPROFEN SODIUM
     Route: 065
     Dates: start: 20141110, end: 20141110
  40. SAWACILLIN [Concomitant]
     Active Substance: AMOXICILLIN
     Route: 065
     Dates: start: 20141105, end: 20141109
  41. CALONAL [Concomitant]
     Active Substance: ACETAMINOPHEN
     Route: 065
     Dates: start: 20141011, end: 20141011
  42. TRASTUZUMAB [Suspect]
     Active Substance: TRASTUZUMAB
     Dosage: MAINTENANCE DOSE?MOST RECENT DOSE:26/SEP/2014, CYCLE 2DAY1
     Route: 042
     Dates: start: 20140815
  43. JANUVIA [Concomitant]
     Active Substance: SITAGLIPTIN PHOSPHATE
  44. INSULIN GLARGINE [Concomitant]
     Active Substance: INSULIN GLARGINE
     Route: 065
     Dates: start: 20140702
  45. FLUMETHOLON [Concomitant]
     Active Substance: FLUOROMETHOLONE
     Route: 047
     Dates: start: 20140822
  46. TRASTUZUMAB [Suspect]
     Active Substance: TRASTUZUMAB
     Dosage: MAINTENANCE DOSE?MOST RECENT DOSE:26/SEP/2014, CYCLE 3DAY1
     Route: 042
     Dates: start: 20140905
  47. EPIRUBICIN [Suspect]
     Active Substance: EPIRUBICIN
     Dosage: CYCLE 4DAY1
     Route: 065
     Dates: start: 20140702
  48. VOGLIBOSE [Concomitant]
     Active Substance: VOGLIBOSE
  49. 5-FLUOROURACIL [Suspect]
     Active Substance: FLUOROURACIL
     Dosage: CYCLE 3DAY1
     Route: 065
     Dates: start: 20140611

REACTIONS (1)
  - Bronchitis [Recovered/Resolved]

NARRATIVE: CASE EVENT DATE: 20141007
